FAERS Safety Report 5510752-5 (Version None)
Quarter: 2007Q4

REPORT INFORMATION
  Report Type: 
  Country: None (occurrence: None)
  Receive Date: 20071108
  Receipt Date: 20071102
  Transmission Date: 20080405
  Serious: Yes (Hospitalization)
  Sender: FDA-Public Use
  Company Number: B0490005A

PATIENT
  Age: 1 Year
  Weight: 9.2 kg

DRUGS (3)
  1. ZOVIRAX [Suspect]
     Indication: ORAL HERPES
     Dosage: 50MG THREE TIMES PER DAY
     Route: 042
     Dates: start: 20070921, end: 20070926
  2. CEFOTAX [Suspect]
     Indication: GINGIVITIS
     Dosage: .3G THREE TIMES PER DAY
     Route: 042
     Dates: start: 20070921, end: 20070926
  3. SOLITA-T NO.3 [Concomitant]
     Indication: DEHYDRATION
     Dosage: 1000ML PER DAY
     Route: 042
     Dates: start: 20070921, end: 20070928

REACTIONS (7)
  - ABDOMINAL DISTENSION [None]
  - ANOREXIA [None]
  - CONSTIPATION [None]
  - DECREASED APPETITE [None]
  - FLATULENCE [None]
  - GRANULOCYTOPENIA [None]
  - ORAL PAIN [None]
